FAERS Safety Report 12619356 (Version 1)
Quarter: 2016Q3

REPORT INFORMATION
  Report Type: Spontaneous
  Country: US (occurrence: US)
  Receive Date: 20160803
  Receipt Date: 20160803
  Transmission Date: 20161109
  Serious: No
  Sender: FDA-Public Use
  Company Number: US-BAYER-2016-150385

PATIENT
  Age: 75 Year
  Sex: Female
  Weight: 56.69 kg

DRUGS (4)
  1. VYTORIN [Concomitant]
     Active Substance: EZETIMIBE\SIMVASTATIN
     Dosage: UNK
  2. EXENATIDE [Concomitant]
     Active Substance: EXENATIDE
     Dosage: UNK
  3. ALEVE [Suspect]
     Active Substance: NAPROXEN SODIUM
     Indication: MUSCLE SPASMS
     Dosage: 1 DF, QD
     Route: 048
     Dates: start: 20160716
  4. BENICAR [Concomitant]
     Active Substance: OLMESARTAN MEDOXOMIL
     Dosage: UNK

REACTIONS (2)
  - Expired product administered [None]
  - Product use issue [None]

NARRATIVE: CASE EVENT DATE: 20160716
